FAERS Safety Report 21258243 (Version 1)
Quarter: 2022Q3

REPORT INFORMATION
  Report Type: Spontaneous
  Country: US (occurrence: None)
  Receive Date: 20220825
  Receipt Date: 20220825
  Transmission Date: 20221027
  Serious: Yes (Other)
  Sender: FDA-Public Use
  Company Number: None

PATIENT
  Age: 33 Year
  Sex: Female
  Weight: 66.22 kg

DRUGS (4)
  1. VENOFER [Suspect]
     Active Substance: IRON SUCROSE
     Indication: Iron deficiency anaemia
     Route: 042
     Dates: start: 20220825
  2. THYROID REPLACEMENT [Concomitant]
  3. VYVANSE [Concomitant]
     Active Substance: LISDEXAMFETAMINE DIMESYLATE
  4. HERBAL NOS [Concomitant]
     Active Substance: HERBALS

REACTIONS (6)
  - Pain in extremity [None]
  - Hypoaesthesia [None]
  - Paraesthesia [None]
  - Radial pulse abnormal [None]
  - Brachial pulse abnormal [None]
  - Peripheral coldness [None]

NARRATIVE: CASE EVENT DATE: 20220825
